FAERS Safety Report 15150240 (Version 1)
Quarter: 2018Q3

REPORT INFORMATION
  Report Type: Spontaneous
  Country: NL (occurrence: NL)
  Receive Date: 20180716
  Receipt Date: 20180716
  Transmission Date: 20181010
  Serious: Yes (Hospitalization)
  Sender: FDA-Public Use
  Company Number: NL-US WORLDMEDS, LLC-STA_00017394

PATIENT
  Age: 63 Year
  Sex: Female

DRUGS (1)
  1. APOMORPHINE HYDROCHLORIDE [Suspect]
     Active Substance: APOMORPHINE HYDROCHLORIDE
     Indication: PARKINSON^S DISEASE
     Dosage: FLOW 1.ML/HR (=5MG/HR) FROM 7 AM UNTIL 10 PM AND BOLUS 0.35ML (=1.75 MG) AT 07.00 AM AND 06.00 PM
     Route: 058
     Dates: start: 20140626

REACTIONS (3)
  - Dyskinesia [Not Recovered/Not Resolved]
  - Pyrexia [Recovered/Resolved]
  - Cystitis [Not Recovered/Not Resolved]

NARRATIVE: CASE EVENT DATE: 20151021
